FAERS Safety Report 4502780-3 (Version None)
Quarter: 2004Q4

REPORT INFORMATION
  Report Type: 
  Country: None (occurrence: None)
  Receive Date: 20041116
  Receipt Date: 20041116
  Transmission Date: 20050328
  Serious: Yes (Other)
  Sender: FDA-Public Use
  Company Number: None

PATIENT

DRUGS (3)
  1. BUPIVACAINE [Suspect]
     Dosage: INTRALESIO
     Route: 026
  2. LIDOCAINE 2% [Suspect]
     Dosage: INTRALESIO
     Route: 026
  3. LIDOCAINE 2% [Concomitant]

REACTIONS (4)
  - DRUG INEFFECTIVE [None]
  - NERVOUSNESS [None]
  - PHARMACEUTICAL PRODUCT COMPLAINT [None]
  - PROCEDURAL COMPLICATION [None]
